FAERS Safety Report 4383991-7 (Version None)
Quarter: 2004Q2

REPORT INFORMATION
  Report Type: 
  Country: None (occurrence: None)
  Receive Date: 20040621
  Receipt Date: 20040602
  Transmission Date: 20050107
  Serious: Yes (Other)
  Sender: FDA-Public Use
  Company Number: M2004.0648

PATIENT
  Age: 50 Year
  Sex: Male

DRUGS (3)
  1. RIMACTANE [Suspect]
     Indication: ATYPICAL MYCOBACTERIAL INFECTION
     Dosage: 450MG/DAY, ORAL
     Route: 048
     Dates: start: 20040401, end: 20040501
  2. ISONIAZID [Suspect]
     Indication: ATYPICAL MYCOBACTERIAL INFECTION
     Dosage: 300MG/DAY, ORAL
     Route: 048
     Dates: start: 20031201, end: 20040501
  3. ETHAMBUTOL HCL [Suspect]
     Indication: ATYPICAL MYCOBACTERIAL INFECTION
     Dosage: 750 MG/DAY; ORAL
     Route: 048
     Dates: start: 20031201, end: 20040501

REACTIONS (2)
  - EOSINOPHIL COUNT INCREASED [None]
  - PNEUMONIA [None]
